FAERS Safety Report 23660630 (Version 1)
Quarter: 2024Q1

REPORT INFORMATION
  Report Type: Report from Study
  Country: US (occurrence: US)
  Receive Date: 20240322
  Receipt Date: 20240322
  Transmission Date: 20240409
  Serious: Yes (Other)
  Sender: FDA-Public Use
  Company Number: US-JNJFOC-20240344958

PATIENT
  Age: 70 Year
  Sex: Female

DRUGS (2)
  1. SPRAVATO [Suspect]
     Active Substance: ESKETAMINE
     Indication: Depression
     Dosage: ^56 MG, 5 TOTAL DOSES^
     Dates: start: 20230629, end: 20231003
  2. SPRAVATO [Suspect]
     Active Substance: ESKETAMINE
     Dosage: ^84 MG, 13 TOTAL DOSES^
     Dates: start: 20231005, end: 20240214

REACTIONS (3)
  - Neoplasm malignant [Unknown]
  - Product dose omission issue [Unknown]
  - Emotional distress [Unknown]

NARRATIVE: CASE EVENT DATE: 20240101
